FAERS Safety Report 8452940-4 (Version None)
Quarter: 2012Q2

REPORT INFORMATION
  Report Type: 
  Country: None (occurrence: None)
  Receive Date: 20120620
  Receipt Date: 20120501
  Transmission Date: 20120825
  Serious: No
  Sender: FDA-Public Use
  Company Number: US-VERTEX PHARMACEUTICALS INC.-AE-2012-006362

PATIENT
  Sex: Female
  Weight: 90.346 kg

DRUGS (7)
  1. RIBAVIRIN [Concomitant]
     Indication: HEPATITIS C
     Route: 048
     Dates: start: 20120430
  2. FISH OIL [Concomitant]
     Indication: MEDICAL DIET
     Route: 048
  3. INCIVEK [Suspect]
     Indication: HEPATITIS C
     Route: 048
     Dates: start: 20120430
  4. ABILIFY [Concomitant]
     Indication: BIPOLAR I DISORDER
     Route: 048
  5. METHADONE HCL [Concomitant]
     Indication: DRUG REHABILITATION
     Route: 048
  6. PEGASYS [Concomitant]
     Indication: HEPATITIS C
     Route: 058
     Dates: start: 20120430
  7. TOPAMAX [Concomitant]
     Indication: CONVULSION
     Route: 048

REACTIONS (1)
  - NAUSEA [None]
